FAERS Safety Report 20258513 (Version 1)
Quarter: 2021Q4

REPORT INFORMATION
  Report Type: Spontaneous
  Country: RO (occurrence: None)
  Receive Date: 20211230
  Receipt Date: 20211230
  Transmission Date: 20220303
  Serious: Yes (Other)
  Sender: FDA-Public Use
  Company Number: 2021A896465

PATIENT
  Age: 70 Year
  Sex: Male

DRUGS (2)
  1. TICAGRELOR [Suspect]
     Active Substance: TICAGRELOR
     Indication: Acute myocardial infarction
     Route: 048
     Dates: start: 202108, end: 202112
  2. ASPIRIN [Concomitant]
     Active Substance: ASPIRIN

REACTIONS (2)
  - Thrombocytopenia [Recovering/Resolving]
  - Urosepsis [Unknown]

NARRATIVE: CASE EVENT DATE: 20211221
